FAERS Safety Report 5684235-6 (Version None)
Quarter: 2008Q1

REPORT INFORMATION
  Report Type: 
  Country: None (occurrence: None)
  Receive Date: 20080327
  Receipt Date: 20080327
  Transmission Date: 20080703
  Serious: Yes (Other)
  Sender: FDA-Public Use
  Company Number: None

PATIENT
  Sex: Female
  Weight: 96.47 kg

DRUGS (1)
  1. ETOPOSIDE [Suspect]
     Indication: CHEMOTHERAPY

REACTIONS (7)
  - CHEST DISCOMFORT [None]
  - DYSPNOEA [None]
  - NAUSEA [None]
  - RALES [None]
  - SWELLING [None]
  - THROAT TIGHTNESS [None]
  - WHEEZING [None]
